FAERS Safety Report 10048666 (Version 1)
Quarter: 2014Q1

REPORT INFORMATION
  Report Type: Spontaneous
  Country: US (occurrence: None)
  Receive Date: 20140327
  Receipt Date: 20140327
  Transmission Date: 20141002
  Serious: Yes (Hospitalization)
  Sender: FDA-Public Use
  Company Number: UTC-045389

PATIENT
  Sex: Female
  Weight: 103.6 kg

DRUGS (2)
  1. REMODULIN ( 10 MILLIGRAM/MILLILITERS, INJECTION FOR INFUSION) (TREPROSTINIL SODIUM) [Suspect]
     Indication: PULMONARY ARTERIAL HYPERTENSION
     Dosage: 89.28UG/KG (0.062 UG/KG 1 IN 1 MIN) SUBCUTANEOUS
     Route: 058
     Dates: start: 20101122
  2. COUMADIN (WARFARIN SODIUM) [Concomitant]

REACTIONS (3)
  - Musculoskeletal pain [None]
  - Arm amputation [None]
  - Neoplasm malignant [None]
